FAERS Safety Report 11747772 (Version 2)
Quarter: 2015Q4

REPORT INFORMATION
  Report Type: Report from Study
  Country: US (occurrence: US)
  Receive Date: 20151117
  Receipt Date: 20151223
  Transmission Date: 20160304
  Serious: Yes (Other)
  Sender: FDA-Public Use
  Company Number: US-ABBVIE-15K-163-1478549-00

PATIENT
  Age: 33 Year
  Sex: Female

DRUGS (1)
  1. HUMIRA [Suspect]
     Active Substance: ADALIMUMAB
     Indication: PSORIASIS
     Route: 058
     Dates: start: 2014

REACTIONS (3)
  - Abdominal pain lower [Not Recovered/Not Resolved]
  - Pancreatic calcification [Not Recovered/Not Resolved]
  - Solid pseudopapillary tumour of the pancreas [Not Recovered/Not Resolved]

NARRATIVE: CASE EVENT DATE: 20150819
